FAERS Safety Report 6190475-2 (Version None)
Quarter: 2009Q2

REPORT INFORMATION
  Report Type: 
  Country: None (occurrence: None)
  Receive Date: 20090514
  Receipt Date: 20090508
  Transmission Date: 20091009
  Serious: Yes (Death)
  Sender: FDA-Public Use
  Company Number: TW-JNJFOC-20090404198

PATIENT
  Sex: Male
  Weight: 71 kg

DRUGS (8)
  1. PALIPERIDONE [Suspect]
     Indication: SCHIZOPHRENIA
     Route: 048
  2. ESZOPICLONE [Concomitant]
     Indication: INSOMNIA
     Route: 048
  3. ALL OTHER THERAPEUTIC DRUGS [Concomitant]
     Indication: CONSTIPATION
     Route: 048
  4. XANTHIUM [Concomitant]
     Indication: CHRONIC OBSTRUCTIVE PULMONARY DISEASE
     Route: 048
  5. ALL OTHER THERAPEUTIC DRUGS [Concomitant]
     Indication: HYPERTENSION
     Route: 048
  6. DIOVAN [Concomitant]
     Indication: HYPERTENSION
     Route: 048
  7. ALL OTHER THERAPEUTIC DRUGS [Concomitant]
     Route: 048
  8. LIPITOR [Concomitant]
     Indication: HYPERLIPIDAEMIA
     Route: 048

REACTIONS (1)
  - COMPLETED SUICIDE [None]
